FAERS Safety Report 18912700 (Version 2)
Quarter: 2021Q1

REPORT INFORMATION
  Report Type: Report from Study
  Country: US (occurrence: US)
  Receive Date: 20210218
  Receipt Date: 20210301
  Transmission Date: 20210420
  Serious: Yes (Other)
  Sender: FDA-Public Use
  Company Number: US-JNJFOC-20210219399

PATIENT
  Sex: Male
  Weight: 90.9 kg

DRUGS (3)
  1. SELEXIPAG [Suspect]
     Active Substance: SELEXIPAG
     Indication: PULMONARY ARTERIAL HYPERTENSION
     Route: 048
  2. ADCIRCA [Concomitant]
     Active Substance: TADALAFIL
  3. XARELTO [Suspect]
     Active Substance: RIVAROXABAN
     Indication: PRODUCT USED FOR UNKNOWN INDICATION
     Route: 065

REACTIONS (8)
  - Headache [Unknown]
  - Epistaxis [Recovered/Resolved]
  - Diarrhoea [Unknown]
  - Arthralgia [Unknown]
  - Insomnia [Unknown]
  - Neuropathy peripheral [Unknown]
  - Flatulence [Unknown]
  - Joint stiffness [Unknown]
